FAERS Safety Report 7971179-X (Version None)
Quarter: 2011Q4

REPORT INFORMATION
  Report Type: 
  Country: None (occurrence: None)
  Receive Date: 20111212
  Receipt Date: 20111206
  Transmission Date: 20120403
  Serious: Yes (Hospitalization, Other)
  Sender: FDA-Public Use
  Company Number: US-AMGEN-USASP2011064753

PATIENT
  Age: 79 Year
  Sex: Female

DRUGS (1)
  1. ENBREL [Suspect]
     Indication: RHEUMATOID ARTHRITIS
     Dosage: 50 MG, QWK
     Dates: start: 20050705

REACTIONS (5)
  - UTERINE PROLAPSE [None]
  - MICTURITION DISORDER [None]
  - PELVIC FRACTURE [None]
  - FALL [None]
  - MELANOCYTIC NAEVUS [None]
